FAERS Safety Report 16842540 (Version 1)
Quarter: 2019Q3

REPORT INFORMATION
  Report Type: Spontaneous
  Country: US (occurrence: US)
  Receive Date: 20190801
  Receipt Date: 20190801
  Transmission Date: 20191005
  Serious: Yes (Hospitalization)
  Sender: FDA-Public Use
  Company Number: None

PATIENT
  Age: 39 Year
  Sex: Male

DRUGS (12)
  1. RAMIPRIL. [Concomitant]
     Active Substance: RAMIPRIL
  2. VENTOLIN HFA [Concomitant]
     Active Substance: ALBUTEROL SULFATE
  3. ALBUTEROL. [Concomitant]
     Active Substance: ALBUTEROL
  4. HUMALOG [Concomitant]
     Active Substance: INSULIN LISPRO
  5. NOVOLIN [Concomitant]
     Active Substance: INSULIN HUMAN
  6. ATORVASTATIN [Concomitant]
     Active Substance: ATORVASTATIN
  7. LANTUS [Concomitant]
     Active Substance: INSULIN GLARGINE
  8. LIALODA [Concomitant]
  9. FLUTICASON [Concomitant]
     Active Substance: FLUTICASONE
  10. HYDROCODONE [Concomitant]
     Active Substance: HYDROCODONE
  11. HUMIRA [Suspect]
     Active Substance: ADALIMUMAB
     Indication: COLITIS ULCERATIVE
     Route: 058
     Dates: start: 20181002
  12. GLIPIZIDE. [Concomitant]
     Active Substance: GLIPIZIDE

REACTIONS (2)
  - Shoulder arthroplasty [None]
  - Colitis ulcerative [None]

NARRATIVE: CASE EVENT DATE: 20190710
